FAERS Safety Report 5384841-2 (Version None)
Quarter: 2007Q3

REPORT INFORMATION
  Report Type: 
  Country: None (occurrence: None)
  Receive Date: 20070706
  Receipt Date: 20070524
  Transmission Date: 20080115
  Serious: No
  Sender: FDA-Public Use
  Company Number: PHEH2007US07950

PATIENT
  Age: 68 Year
  Sex: Male

DRUGS (2)
  1. TEKTURNA [Suspect]
     Indication: HYPERTENSION
     Dosage: 150 MG;QD;ORAL; 300 MG;QD;ORAL
     Route: 048
     Dates: start: 20070301, end: 20070401
  2. TEKTURNA [Suspect]
     Indication: HYPERTENSION
     Dosage: 150 MG;QD;ORAL; 300 MG;QD;ORAL
     Route: 048
     Dates: start: 20070401

REACTIONS (1)
  - MEMORY IMPAIRMENT [None]
